FAERS Safety Report 8953494 (Version 2)
Quarter: 2013Q1

REPORT INFORMATION
  Report Type: Spontaneous
  Country: ES (occurrence: ES)
  Receive Date: 20121206
  Receipt Date: 20130204
  Transmission Date: 20140127
  Serious: Yes (Other)
  Sender: FDA-Public Use
  Company Number: ES-GLAXOSMITHKLINE-B0848636A

PATIENT
  Age: 36 Year
  Sex: Female

DRUGS (7)
  1. FLUTICASONE/SALMETEROL [Suspect]
     Indication: ASTHMA
     Route: 055
  2. RITONAVIR [Suspect]
     Indication: HIV INFECTION
     Route: 065
  3. METFORMIN [Concomitant]
     Indication: TYPE 2 DIABETES MELLITUS
  4. INSULIN GLARGINE [Concomitant]
     Indication: TYPE 2 DIABETES MELLITUS
  5. TENOFOVIR [Concomitant]
     Indication: HIV INFECTION
  6. EMTRICITABINE [Concomitant]
     Indication: HIV INFECTION
  7. EFAVIRENZ [Concomitant]
     Indication: HIV INFECTION

REACTIONS (21)
  - Cushing^s syndrome [Recovered/Resolved]
  - Drug interaction [Unknown]
  - Weight increased [Unknown]
  - Skin striae [Unknown]
  - Muscular weakness [Unknown]
  - Myopathy [Unknown]
  - Waist circumference increased [Unknown]
  - Oedema peripheral [Unknown]
  - Diabetes mellitus inadequate control [Unknown]
  - Amenorrhoea [Unknown]
  - Cushingoid [Unknown]
  - Lipohypertrophy [Unknown]
  - Blood cortisol decreased [Unknown]
  - Blood corticotrophin abnormal [Unknown]
  - Adrenal suppression [Unknown]
  - Blood cortisol decreased [Unknown]
  - Fatigue [Unknown]
  - Nausea [Unknown]
  - Orthostatic hypotension [Unknown]
  - Impetigo [Unknown]
  - Central obesity [Unknown]
